FAERS Safety Report 7572871-1 (Version None)
Quarter: 2011Q2

REPORT INFORMATION
  Report Type: 
  Country: None (occurrence: None)
  Receive Date: 20110627
  Receipt Date: 20110613
  Transmission Date: 20111010
  Serious: Yes (Hospitalization)
  Sender: FDA-Public Use
  Company Number: IT-ELI_LILLY_AND_COMPANY-IT201106003339

PATIENT
  Sex: Female

DRUGS (9)
  1. HUMALOG [Concomitant]
     Dosage: 27 IU, UNK
     Route: 058
  2. HUMALOG NPL [Concomitant]
     Dosage: 18 IU, UNK
     Route: 058
  3. DEURSIL [Concomitant]
  4. PANTOPRAZOLE SODIUM [Concomitant]
     Dosage: 40 MG, UNK
     Route: 048
  5. ALDACTONE [Concomitant]
     Dosage: 100 MG, UNK
     Route: 048
  6. LYRICA [Concomitant]
     Dosage: 75 MG, UNK
     Route: 048
  7. LASIX [Concomitant]
     Dosage: 1.25 MG, UNK
     Route: 048
  8. ZYPREXA [Suspect]
     Indication: DEPRESSION
     Dosage: 10 MG, QD
     Route: 048
     Dates: start: 20100501, end: 20110527
  9. RIFAXIMIN [Concomitant]

REACTIONS (7)
  - PRESYNCOPE [None]
  - NEUROLEPTIC MALIGNANT SYNDROME [None]
  - OFF LABEL USE [None]
  - ABDOMINAL PAIN [None]
  - PANCREATITIS ACUTE [None]
  - RHABDOMYOLYSIS [None]
  - COGNITIVE DISORDER [None]
